FAERS Safety Report 9939752 (Version 1)
Quarter: 2014Q1

REPORT INFORMATION
  Report Type: Report from Study
  Country: US (occurrence: US)
  Receive Date: 20140303
  Receipt Date: 20140303
  Transmission Date: 20141002
  Serious: No
  Sender: FDA-Public Use
  Company Number: US-ABBVIE-13P-163-1036166-00

PATIENT
  Age: 59 Year
  Sex: Female

DRUGS (7)
  1. HUMIRA [Suspect]
     Indication: CROHN^S DISEASE
     Dates: start: 20121004
  2. RELISTOR [Concomitant]
     Indication: CONSTIPATION
     Route: 050
  3. FENTANYL [Concomitant]
     Indication: BACK PAIN
     Dosage: PATCH
  4. PENTASA [Concomitant]
     Indication: PRODUCT USED FOR UNKNOWN INDICATION
  5. AMITIZA [Concomitant]
     Indication: CROHN^S DISEASE
  6. CYMBALTA [Concomitant]
     Indication: DEPRESSION
  7. METHOCARBAMOL [Concomitant]
     Indication: BACK PAIN

REACTIONS (3)
  - Skin lesion [Recovering/Resolving]
  - Gastric disorder [Recovered/Resolved]
  - Oral disorder [Recovered/Resolved]
